FAERS Safety Report 8811058 (Version 2)
Quarter: 2012Q4

REPORT INFORMATION
  Report Type: 
  Country: BR (occurrence: BR)
  Receive Date: 20120927
  Receipt Date: 20121003
  Transmission Date: 20130627
  Serious: Yes (Other)
  Sender: FDA-Public Use
  Company Number: PHHY2012BR082473

PATIENT
  Age: 65 Year
  Sex: Male
  Weight: 63 kg

DRUGS (9)
  1. GALVUS MET [Suspect]
     Dosage: 1 DF(850mg vild/ 50mg metf), BID
  2. DIOVAN AMLO [Suspect]
     Dosage: 1 DF (160mg vals/ 5mg HCT), daily
  3. ROSUVASTATIN [Concomitant]
     Dosage: 10 mg, daily
  4. ROSUVASTATIN [Concomitant]
     Dosage: 20 mg, daily
  5. NEBIVOLOL [Concomitant]
     Dosage: 5 mg, daily
  6. ASPIRIN [Concomitant]
     Dosage: 100 mg, daily
  7. VASTAREL [Concomitant]
     Dosage: 35 mg, daily
  8. PANTOPRAZOLE [Concomitant]
     Dosage: 20 mg, daily
  9. CLOPIDOGREL [Concomitant]
     Dosage: 75 mg, daily

REACTIONS (6)
  - Hypoperfusion [Recovered/Resolved]
  - Arterial occlusive disease [Recovered/Resolved]
  - Carotid artery stenosis [Recovered/Resolved]
  - Coronary artery stenosis [Recovered/Resolved]
  - Gastritis [Recovered/Resolved]
  - Blood pressure increased [Recovered/Resolved]
